FAERS Safety Report 9254117 (Version 1)
Quarter: 2013Q2

REPORT INFORMATION
  Report Type: Spontaneous
  Country: US (occurrence: None)
  Receive Date: 20130422
  Receipt Date: 20130422
  Transmission Date: 20140414
  Serious: Yes (Life-Threatening)
  Sender: FDA-Public Use
  Company Number: None

PATIENT
  Age: 79 Year
  Sex: Male
  Weight: 77.8 kg

DRUGS (2)
  1. HEPARIN [Suspect]
     Indication: CORONARY ARTERIAL STENT INSERTION
     Route: 042
     Dates: start: 20130111, end: 20130111
  2. EPTIFIBATIDE [Suspect]
     Indication: CORONARY ARTERIAL STENT INSERTION
     Route: 042
     Dates: start: 20130111, end: 20130111

REACTIONS (10)
  - Pulseless electrical activity [None]
  - Cardiac arrest [None]
  - Hypovolaemic shock [None]
  - Haemothorax [None]
  - Retroperitoneal haemorrhage [None]
  - Ventricular fibrillation [None]
  - Hypotension [None]
  - Device malfunction [None]
  - Haemoglobin decreased [None]
  - Activated partial thromboplastin time prolonged [None]
